FAERS Safety Report 5828229-6 (Version None)
Quarter: 2008Q3

REPORT INFORMATION
  Report Type: 
  Country: None (occurrence: None)
  Receive Date: 20080729
  Receipt Date: 20080725
  Transmission Date: 20090109
  Serious: Yes (Hospitalization)
  Sender: FDA-Public Use
  Company Number: PHBS2006NL14764

PATIENT
  Age: 40 Year
  Sex: Female

DRUGS (3)
  1. TEMAZEPAM [Suspect]
     Dosage: 400 MG, ONCE/SINGLE
  2. DIAZEPAM [Suspect]
     Dosage: 200 MG, ONCE/SINGLE
  3. SERTRALINE [Suspect]
     Dosage: 2250 MG, ONCE/SINGLE

REACTIONS (7)
  - ELECTROCARDIOGRAM QT PROLONGED [None]
  - ELECTROCARDIOGRAM T WAVE INVERSION [None]
  - FATIGUE [None]
  - HEART RATE INCREASED [None]
  - MULTIPLE DRUG OVERDOSE INTENTIONAL [None]
  - SOMNOLENCE [None]
  - SUICIDE ATTEMPT [None]
